FAERS Safety Report 17581702 (Version 1)
Quarter: 2020Q1

REPORT INFORMATION
  Report Type: Spontaneous
  Country: GB (occurrence: GB)
  Receive Date: 20200325
  Receipt Date: 20200325
  Transmission Date: 20200409
  Serious: Yes (Hospitalization)
  Sender: FDA-Public Use
  Company Number: GB-MYLANLABS-2020M1030519

PATIENT
  Age: 68 Year
  Sex: Male
  Weight: 81 kg

DRUGS (2)
  1. METOCLOPRAMIDE. [Concomitant]
     Active Substance: METOCLOPRAMIDE
     Indication: NAUSEA
     Dosage: UP TO 3 TIMES A DAY
     Dates: start: 20200117
  2. SIMVASTATIN. [Suspect]
     Active Substance: SIMVASTATIN
     Indication: TYPE V HYPERLIPIDAEMIA
     Dosage: AT NIGHT (40MG,QD)
     Dates: start: 20200107

REACTIONS (4)
  - Rhabdomyolysis [Unknown]
  - Jaundice [Recovering/Resolving]
  - Decreased appetite [Unknown]
  - Myalgia [Unknown]

NARRATIVE: CASE EVENT DATE: 20200214
